FAERS Safety Report 5830145-0 (Version None)
Quarter: 2008Q3

REPORT INFORMATION
  Report Type: 
  Country: None (occurrence: None)
  Receive Date: 20080801
  Receipt Date: 20080723
  Transmission Date: 20090109
  Serious: Yes (Death, Hospitalization, Other)
  Sender: FDA-Public Use
  Company Number: FR-AMGEN-US277395

PATIENT
  Sex: Male

DRUGS (4)
  1. ENBREL [Suspect]
     Indication: RHEUMATOID ARTHRITIS
     Dosage: UNKNOWN
     Route: 058
     Dates: start: 20050101, end: 20080401
  2. MABTHERA [Concomitant]
     Indication: RHEUMATOID ARTHRITIS
     Dosage: UNKNOWN
     Route: 042
     Dates: start: 20080401
  3. CORTANCYL [Concomitant]
     Indication: RHEUMATOID ARTHRITIS
     Dosage: UNKNOWN
     Route: 048
  4. ARAVA [Concomitant]
     Indication: RHEUMATOID ARTHRITIS
     Dosage: UNKNOWN
     Route: 048

REACTIONS (17)
  - BURSITIS [None]
  - BURSITIS INFECTIVE STAPHYLOCOCCAL [None]
  - CHEST X-RAY ABNORMAL [None]
  - CHOLESTASIS [None]
  - CONDITION AGGRAVATED [None]
  - DRUG ERUPTION [None]
  - DRUG INEFFECTIVE [None]
  - DYSPNOEA [None]
  - ESCHERICHIA BACTERAEMIA [None]
  - INTERVERTEBRAL DISCITIS [None]
  - MYOCARDIAL INFARCTION [None]
  - OEDEMA PERIPHERAL [None]
  - PAIN IN EXTREMITY [None]
  - PITTING OEDEMA [None]
  - PLEURAL EFFUSION [None]
  - RHEUMATOID ARTHRITIS [None]
  - SUPERFICIAL SPREADING MELANOMA STAGE UNSPECIFIED [None]
